FAERS Safety Report 24342350 (Version 1)
Quarter: 2024Q3

REPORT INFORMATION
  Report Type: Spontaneous
  Country: GB (occurrence: GB)
  Receive Date: 20240920
  Receipt Date: 20240920
  Transmission Date: 20241017
  Serious: Yes (Other)
  Sender: AUROBINDO
  Company Number: GB-MHRA-TPP7342680C14998756YC1725792392107

PATIENT
  Age: 46 Year
  Sex: Female
  Weight: 62 kg

DRUGS (5)
  1. NITROFURANTOIN [Suspect]
     Active Substance: NITROFURANTOIN
     Indication: Ill-defined disorder
     Dosage: UNK
     Route: 065
  2. ESTRIOL [Concomitant]
     Active Substance: ESTRIOL
     Indication: Ill-defined disorder
     Dosage: UNK APPLY TWICE WEEKLY AT NIGHT (MAINTENACE DOSE)
     Route: 065
     Dates: start: 20240601
  3. ESTRADERM [Concomitant]
     Active Substance: ESTRADIOL
     Indication: Ill-defined disorder
     Dosage: UNK (APPLY TWO PATCHES TWICE WEEKLY)
     Route: 065
     Dates: start: 20231026
  4. SUMATRIPTAN [Concomitant]
     Active Substance: SUMATRIPTAN\SUMATRIPTAN SUCCINATE
     Indication: Ill-defined disorder
     Dosage: 1 DOSAGE FORM (TAKE ONE TABLET AT ONSET OF ATTACK. IF NOT RESP)
     Route: 065
     Dates: start: 20240227
  5. TRAMADOL [Concomitant]
     Active Substance: TRAMADOL\TRAMADOL HYDROCHLORIDE
     Indication: Ill-defined disorder
     Dosage: UNK UNK, FOUR TIMES/DAY (1 OR 2 CAPSULES FOUR TIMES DAILY IF NEEDED FOR)
     Route: 065
     Dates: start: 20240808

REACTIONS (3)
  - Myalgia [Recovering/Resolving]
  - Malaise [Recovering/Resolving]
  - Nausea [Recovering/Resolving]
